FAERS Safety Report 20394451 (Version 5)
Quarter: 2025Q3

REPORT INFORMATION
  Report Type: Spontaneous
  Country: EU (occurrence: EU)
  Receive Date: 20220129
  Receipt Date: 20250724
  Transmission Date: 20251020
  Serious: Yes (Other)
  Sender: AUROBINDO
  Company Number: EU-DURBAN-202100067

PATIENT
  Age: 67 Year
  Sex: Female
  Weight: 85 kg

DRUGS (14)
  1. AMLODIPINE [Suspect]
     Active Substance: AMLODIPINE BESYLATE
     Indication: Hypertension
     Route: 065
  2. ENALAPRIL [Suspect]
     Active Substance: ENALAPRIL
     Indication: Hypertension
     Route: 065
     Dates: start: 20190116, end: 20190125
  3. CARVEDILOL [Suspect]
     Active Substance: CARVEDILOL
     Indication: Hypertension
     Route: 065
  4. FUROSEMIDE [Suspect]
     Active Substance: FUROSEMIDE
     Indication: Hypertension
     Route: 065
  5. SPIRONOLACTONE [Suspect]
     Active Substance: SPIRONOLACTONE
     Indication: Hypertension
     Route: 065
  6. MAGNESIUM [Concomitant]
     Active Substance: MAGNESIUM
     Indication: Product used for unknown indication
     Route: 065
  7. OMEPRAZOLE [Concomitant]
     Active Substance: OMEPRAZOLE
     Indication: Product used for unknown indication
     Route: 065
  8. TRAMADOL [Concomitant]
     Active Substance: TRAMADOL
     Indication: Product used for unknown indication
     Route: 065
  9. DEXKETOPROFEN [Concomitant]
     Active Substance: DEXKETOPROFEN
     Indication: Product used for unknown indication
     Route: 065
  10. LACTULOSE [Concomitant]
     Active Substance: LACTULOSE
     Indication: Product used for unknown indication
     Route: 065
  11. POTASSIUM ASCORBATE [Concomitant]
     Active Substance: POTASSIUM ASCORBATE
     Indication: Product used for unknown indication
     Route: 065
  12. BEMIPARIN [Concomitant]
     Active Substance: BEMIPARIN
     Indication: Product used for unknown indication
     Route: 065
  13. ACETAMINOPHEN [Concomitant]
     Active Substance: ACETAMINOPHEN
     Indication: Product used for unknown indication
     Route: 065
  14. INSULIN NOS [Concomitant]
     Active Substance: INSULIN NOS
     Indication: Product used for unknown indication
     Route: 065

REACTIONS (1)
  - Blood pressure inadequately controlled [Recovering/Resolving]

NARRATIVE: CASE EVENT DATE: 20190201
